FAERS Safety Report 10526898 (Version 2)
Quarter: 2014Q4

REPORT INFORMATION
  Report Type: Spontaneous
  Country: US (occurrence: US)
  Receive Date: 20141020
  Receipt Date: 20141020
  Transmission Date: 20150528
  Serious: No
  Sender: FDA-Public Use
  Company Number: US-DRREDDYS-USA/USA/14/0042229

PATIENT
  Sex: Male

DRUGS (1)
  1. ZENATANE [Suspect]
     Active Substance: ISOTRETINOIN
     Indication: FOLLICULITIS
     Route: 065
     Dates: start: 20140428, end: 20140801

REACTIONS (2)
  - Drug ineffective [Unknown]
  - Product quality issue [Unknown]
